FAERS Safety Report 8545337-X (Version None)
Quarter: 2012Q3

REPORT INFORMATION
  Report Type: 
  Country: None (occurrence: None)
  Receive Date: 20120727
  Receipt Date: 20120719
  Transmission Date: 20120928
  Serious: Yes (Hospitalization, Other)
  Sender: FDA-Public Use
  Company Number: JP-ASTELLAS-2012JP004171

PATIENT
  Age: 22 Year
  Sex: Male
  Weight: 69 kg

DRUGS (17)
  1. METHOTREXATE [Concomitant]
     Indication: PROPHYLAXIS AGAINST GRAFT VERSUS HOST DISEASE
     Route: 065
  2. FLUDARABINE PHOSPHATE [Concomitant]
     Indication: BONE MARROW CONDITIONING REGIMEN
     Route: 065
  3. CYCLOPHOSPHAMIDE [Concomitant]
     Indication: BONE MARROW CONDITIONING REGIMEN
     Route: 065
  4. METHYLPREDNISOLONE [Concomitant]
     Dosage: 60 MG, UNKNOWN/D
     Route: 065
  5. PROGRAF [Suspect]
     Indication: PROPHYLAXIS AGAINST GRAFT VERSUS HOST DISEASE
     Dosage: UNK
     Route: 048
  6. PREDNISOLONE [Concomitant]
     Dosage: 35 MG, UNKNOWN/D
     Route: 065
  7. ANTILYMPHOCYTE GLOBULIN [Concomitant]
     Indication: BONE MARROW CONDITIONING REGIMEN
     Route: 065
  8. MYCOPHENOLATE MOFETIL [Concomitant]
     Indication: IMMUNOSUPPRESSANT DRUG THERAPY
     Dosage: 750 MG, UNKNOWN/D
     Route: 065
  9. PREDNISOLONE [Concomitant]
     Dosage: 30 MG, UNKNOWN/D
     Route: 065
  10. MYCOPHENOLATE MOFETIL [Concomitant]
     Dosage: 1500 MG, UNKNOWN/D
     Route: 065
  11. METHYLPREDNISOLONE [Concomitant]
     Dosage: 10 MG/KG, UNKNOWN/D
     Route: 065
  12. METHYLPREDNISOLONE [Concomitant]
     Dosage: 80 MG, UNKNOWN/D
     Route: 065
  13. METHYLPREDNISOLONE [Concomitant]
     Dosage: 50 MG, UNKNOWN/D
     Route: 065
  14. PREDNISOLONE [Concomitant]
     Indication: IMMUNOSUPPRESSANT DRUG THERAPY
     Dosage: 40 MG, UNKNOWN/D
     Route: 065
  15. ETOPOSIDE [Concomitant]
     Indication: BONE MARROW CONDITIONING REGIMEN
     Route: 065
  16. PROGRAF [Suspect]
     Indication: IMMUNOSUPPRESSANT DRUG THERAPY
  17. PREDNISOLONE [Concomitant]
     Indication: PROPHYLAXIS AGAINST GRAFT VERSUS HOST DISEASE
     Dosage: 5 MG, UNKNOWN/D
     Route: 065

REACTIONS (4)
  - DRUG INEFFECTIVE [None]
  - ACUTE GRAFT VERSUS HOST DISEASE [None]
  - PROTEIN-LOSING GASTROENTEROPATHY [None]
  - RESPIRATORY SYNCYTIAL VIRUS INFECTION [None]
